FAERS Safety Report 4890792-X (Version None)
Quarter: 2006Q1

REPORT INFORMATION
  Report Type: 
  Country: None (occurrence: None)
  Receive Date: 20060123
  Receipt Date: 20060111
  Transmission Date: 20060701
  Serious: Yes (Hospitalization)
  Sender: FDA-Public Use
  Company Number: 2006007844

PATIENT
  Sex: Female

DRUGS (8)
  1. ZOLOFT [Suspect]
     Indication: ILL-DEFINED DISORDER
  2. DILTIAZEM [Suspect]
     Indication: ILL-DEFINED DISORDER
  3. REQUIP [Suspect]
     Indication: ILL-DEFINED DISORDER
  4. LABETALOL HCL [Suspect]
     Indication: ILL-DEFINED DISORDER
  5. PLAVIX [Suspect]
     Indication: ILL-DEFINED DISORDER
  6. HYZAAR [Suspect]
     Indication: ILL-DEFINED DISORDER
  7. ASPIRIN [Concomitant]
  8. ALL OTHER THERAPEUTIC PRODUCTS [Concomitant]

REACTIONS (2)
  - HIP FRACTURE [None]
  - OSTEOARTHRITIS [None]
